FAERS Safety Report 13783880 (Version 1)
Quarter: 2017Q3

REPORT INFORMATION
  Report Type: Spontaneous
  Country: US (occurrence: US)
  Receive Date: 20170724
  Receipt Date: 20170724
  Transmission Date: 20171127
  Serious: Yes (Hospitalization, Other)
  Sender: FDA-Public Use
  Company Number: US-TEVA-789776USA

PATIENT
  Age: 68 Year
  Sex: Male

DRUGS (5)
  1. VALSARTAN. [Concomitant]
     Active Substance: VALSARTAN
     Route: 065
  2. METOPROLOL. [Interacting]
     Active Substance: METOPROLOL
     Indication: HYPERTENSION
     Dosage: 50 MG DAILY
     Route: 065
  3. APIXABAN [Concomitant]
     Active Substance: APIXABAN
     Route: 065
  4. PROPAFENONE. [Suspect]
     Active Substance: PROPAFENONE
     Indication: ATRIAL FIBRILLATION
     Route: 065
  5. HYDROCHLOROTHIAZIDE. [Concomitant]
     Active Substance: HYDROCHLOROTHIAZIDE
     Route: 065

REACTIONS (4)
  - Nodal arrhythmia [Recovered/Resolved]
  - Toxicity to various agents [Recovered/Resolved]
  - Drug interaction [Recovered/Resolved]
  - Hypotension [Recovered/Resolved]
